FAERS Safety Report 15492279 (Version 2)
Quarter: 2018Q4

REPORT INFORMATION
  Report Type: Spontaneous
  Country: IN (occurrence: IN)
  Receive Date: 20181012
  Receipt Date: 20181012
  Transmission Date: 20190205
  Serious: Yes (Hospitalization, Other)
  Sender: FDA-Public Use
  Company Number: IN-LUPIN LIMITED-2018-07017

PATIENT
  Age: 5 Year
  Sex: Male

DRUGS (1)
  1. LEVETIRACETAM. [Suspect]
     Active Substance: LEVETIRACETAM
     Indication: GENERALISED TONIC-CLONIC SEIZURE
     Dosage: 30 MG/KG, UNK
     Route: 065

REACTIONS (5)
  - Abnormal behaviour [Recovered/Resolved]
  - Disturbance in attention [Recovered/Resolved]
  - Suicidal ideation [Recovered/Resolved]
  - Product administered to patient of inappropriate age [Unknown]
  - Crying [Recovered/Resolved]
